FAERS Safety Report 6891087-5 (Version None)
Quarter: 2010Q3

REPORT INFORMATION
  Report Type: 
  Country: None (occurrence: None)
  Receive Date: 20100731
  Receipt Date: 20090529
  Transmission Date: 20110219
  Serious: No
  Sender: FDA-Public Use
  Company Number: US-PFIZER INC-2009222333

PATIENT
  Age: 53 Year
  Sex: Male

DRUGS (2)
  1. LIPITOR [Suspect]
     Dosage: 20 MG, 1X/DAY
  2. NORVASC [Concomitant]
     Dosage: 5MG PER DAY

REACTIONS (2)
  - FATIGUE [None]
  - MALAISE [None]
